FAERS Safety Report 6211555-9 (Version None)
Quarter: 2009Q2

REPORT INFORMATION
  Report Type: 
  Country: None (occurrence: None)
  Receive Date: 20090602
  Receipt Date: 20090527
  Transmission Date: 20091009
  Serious: Yes (Hospitalization, Other)
  Sender: FDA-Public Use
  Company Number: FR-BRISTOL-MYERS SQUIBB COMPANY-14581052

PATIENT
  Age: 30 Year
  Sex: Female

DRUGS (7)
  1. SPRYCEL [Suspect]
     Indication: ACUTE LYMPHOCYTIC LEUKAEMIA
     Route: 048
     Dates: start: 20090201, end: 20090301
  2. CYCLOPHOSPHAMIDE [Suspect]
     Indication: ACUTE LYMPHOCYTIC LEUKAEMIA
  3. VINCRISTINE SULFATE [Suspect]
     Indication: ACUTE LYMPHOCYTIC LEUKAEMIA
     Route: 042
     Dates: start: 20090201, end: 20090301
  4. METHOTREXATE [Suspect]
     Indication: ACUTE LYMPHOCYTIC LEUKAEMIA
     Dates: start: 20090201
  5. DEXAMETHASONE 4MG TAB [Concomitant]
     Dosage: TABS
  6. FOLIC ACID [Concomitant]
  7. ELSPAR [Concomitant]

REACTIONS (3)
  - FEBRILE BONE MARROW APLASIA [None]
  - NEPHROPATHY TOXIC [None]
  - RENAL FAILURE [None]
